FAERS Safety Report 13496756 (Version 1)
Quarter: 2017Q2

REPORT INFORMATION
  Report Type: Spontaneous
  Country: FR (occurrence: FR)
  Receive Date: 20170428
  Receipt Date: 20170428
  Transmission Date: 20170830
  Serious: Yes (Disabling)
  Sender: FDA-Public Use
  Company Number: FR-ASTRAZENECA-2017SE43269

PATIENT
  Age: 78 Year
  Sex: Female

DRUGS (13)
  1. EFFEXOR [Suspect]
     Active Substance: VENLAFAXINE HYDROCHLORIDE
     Indication: DEPRESSION
     Route: 065
     Dates: end: 20170104
  2. GLUCOPHAGE [Suspect]
     Active Substance: METFORMIN HYDROCHLORIDE
     Indication: TYPE 2 DIABETES MELLITUS
     Dosage: NON-AZ 50 MG DAILY
     Route: 065
  3. KARDEGIC [Concomitant]
     Active Substance: ASPIRIN LYSINE
  4. LEVOTHYROX [Concomitant]
     Active Substance: LEVOTHYROXINE
  5. NOCTAMIDE [Concomitant]
     Active Substance: LORMETAZEPAM
  6. TOVIAZ [Concomitant]
     Active Substance: FESOTERODINE FUMARATE
  7. HYZAAR [Suspect]
     Active Substance: HYDROCHLOROTHIAZIDE\LOSARTAN POTASSIUM
     Indication: HYPERTENSION
     Dosage: 50/12.5 MG/DAY
     Route: 065
  8. VELMETIA [Concomitant]
     Active Substance: METFORMIN\SITAGLIPTIN
  9. ZYMAD [Concomitant]
     Active Substance: CHOLECALCIFEROL
  10. MESTINON [Concomitant]
     Active Substance: PYRIDOSTIGMINE BROMIDE
  11. CRESTOR [Suspect]
     Active Substance: ROSUVASTATIN CALCIUM
     Indication: DYSLIPIDAEMIA
     Route: 048
  12. NOVONORM [Concomitant]
     Active Substance: REPAGLINIDE
  13. OGASTORO [Concomitant]
     Active Substance: LANSOPRAZOLE

REACTIONS (1)
  - Pulmonary fibrosis [Not Recovered/Not Resolved]

NARRATIVE: CASE EVENT DATE: 201701
